FAERS Safety Report 7547303-X (Version None)
Quarter: 2011Q2

REPORT INFORMATION
  Report Type: 
  Country: None (occurrence: None)
  Receive Date: 20110614
  Receipt Date: 20090316
  Transmission Date: 20111010
  Serious: Yes (Hospitalization, Other)
  Sender: FDA-Public Use
  Company Number: US-BAYER-200915600NA

PATIENT
  Age: 63 Year
  Sex: Female
  Weight: 61 kg

DRUGS (15)
  1. TRASYLOL [Suspect]
     Indication: CORONARY ARTERY BYPASS
     Dosage: 200 ML, ONCE, LOADING DOSE
     Route: 042
     Dates: start: 20030829, end: 20030829
  2. HEPARIN [Concomitant]
     Dosage: UNK
     Route: 042
     Dates: start: 20030829, end: 20030829
  3. PROTAMINE SULFATE [Concomitant]
     Dosage: 250 MG, UNK
     Route: 042
     Dates: start: 20030829, end: 20030829
  4. RED BLOOD CELLS [Concomitant]
     Dosage: 1000 ML, ONCE
     Route: 042
     Dates: start: 20030829
  5. TRASYLOL [Suspect]
     Indication: MITRAL VALVE REPAIR
     Dosage: UNK, INFUSION
     Route: 041
     Dates: start: 20030829, end: 20030829
  6. LOPRESSOR [Concomitant]
     Dosage: UNK
     Route: 048
     Dates: start: 20020101
  7. FIORANCE [Concomitant]
     Dosage: UNK
     Route: 042
     Dates: start: 20030829, end: 20030829
  8. PLATELETS [Concomitant]
     Dosage: 20 U, ONCE
     Route: 042
     Dates: start: 20030829
  9. ACCUPRIL [Concomitant]
     Dosage: UNK
     Route: 048
     Dates: start: 20020101
  10. PLAVIX [Concomitant]
     Dosage: UNK
     Route: 048
     Dates: start: 20020101
  11. ZOCOR [Concomitant]
     Dosage: UNK
     Route: 048
     Dates: start: 20020101
  12. MANNITOL [Concomitant]
     Dosage: 100 MG, UNK
     Route: 042
     Dates: start: 20030829, end: 20030829
  13. PLASMA [Concomitant]
     Dosage: 2 U, ONCE
     Route: 042
     Dates: start: 20030829
  14. VERSED [Concomitant]
     Dosage: UNK
     Route: 042
     Dates: start: 20030829, end: 20030829
  15. BENADRYL [Concomitant]
     Dosage: UNK
     Route: 042
     Dates: start: 20030829, end: 20030829

REACTIONS (9)
  - INJURY [None]
  - ANXIETY [None]
  - PAIN [None]
  - ANHEDONIA [None]
  - ADVERSE EVENT [None]
  - UNEVALUABLE EVENT [None]
  - FEAR [None]
  - RENAL FAILURE [None]
  - DEPRESSION [None]
